FAERS Safety Report 6660391-8 (Version None)
Quarter: 2010Q1

REPORT INFORMATION
  Report Type: 
  Country: None (occurrence: None)
  Receive Date: 20100330
  Receipt Date: 20100330
  Transmission Date: 20100710
  Serious: No
  Sender: FDA-Public Use
  Company Number: None

PATIENT
  Age: 88 Year
  Sex: Male
  Weight: 60.782 kg

DRUGS (2)
  1. ACTONEL [Suspect]
     Indication: BONE DENSITY DECREASED
     Dates: start: 20090723, end: 20100310
  2. ACTONEL [Suspect]
     Indication: OSTEOPOROSIS
     Dates: start: 20090723, end: 20100310

REACTIONS (2)
  - JOINT STIFFNESS [None]
  - MASTICATION DISORDER [None]
